FAERS Safety Report 14258314 (Version 1)
Quarter: 2017Q4

REPORT INFORMATION
  Report Type: Spontaneous
  Country: KR (occurrence: KR)
  Receive Date: 20171207
  Receipt Date: 20171207
  Transmission Date: 20180321
  Serious: Yes (Other)
  Sender: FDA-Public Use
  Company Number: KR-CIPLA LTD.-2017KR21481

PATIENT

DRUGS (3)
  1. CELECOXIB. [Suspect]
     Active Substance: CELECOXIB
     Indication: BACK PAIN
     Dosage: 2 DF, UNK, TWO-FOLD OF USUAL DOSE
     Route: 048
  2. RALOXIFENE HYDROCHLORIDE. [Concomitant]
     Active Substance: RALOXIFENE HYDROCHLORIDE
     Indication: BACK PAIN
     Dosage: 60 MG, QD FOR 7 WEEKS
     Route: 065
  3. CALCIUM CARBONATE (1250 MG)/CHOLECALCIFEROL(400 IU) [Concomitant]
     Indication: BACK PAIN
     Dosage: UNK, BID FOR 7 WEEKS
     Route: 065

REACTIONS (2)
  - Accidental overdose [Unknown]
  - Acute generalised exanthematous pustulosis [Recovered/Resolved]
